FAERS Safety Report 13323681 (Version 1)
Quarter: 2017Q1

REPORT INFORMATION
  Report Type: Spontaneous
  Country: US (occurrence: US)
  Receive Date: 20170310
  Receipt Date: 20170310
  Transmission Date: 20170428
  Serious: No
  Sender: FDA-Public Use
  Company Number: US-PFIZER INC-2017103370

PATIENT
  Sex: Female

DRUGS (1)
  1. PREMPRO [Suspect]
     Active Substance: ESTROGENS, CONJUGATED\MEDROXYPROGESTERONE ACETATE
     Dosage: UNK

REACTIONS (7)
  - Body height decreased [Unknown]
  - Vulvovaginal dryness [Unknown]
  - Fat tissue increased [Unknown]
  - Vulvovaginal burning sensation [Unknown]
  - Myalgia [Unknown]
  - Drug hypersensitivity [Unknown]
  - Overweight [Unknown]
